FAERS Safety Report 8293493-3 (Version None)
Quarter: 2012Q2

REPORT INFORMATION
  Report Type: 
  Country: None (occurrence: None)
  Receive Date: 20120417
  Receipt Date: 20120402
  Transmission Date: 20120825
  Serious: Yes (Other)
  Sender: FDA-Public Use
  Company Number: CHPA2012US008647

PATIENT
  Age: 65 Year
  Sex: Female

DRUGS (1)
  1. MAALOX ADV MAXIMUM STRENGTH ANTACID/ANTIGAS [Suspect]
     Dosage: 3 TSP, PRN
     Route: 048
     Dates: end: 20120331

REACTIONS (7)
  - BRAIN NEOPLASM [None]
  - CEREBROVASCULAR ACCIDENT [None]
  - GASTROINTESTINAL PAIN [None]
  - HYDROCEPHALUS [None]
  - MYOCARDIAL INFARCTION [None]
  - ARTHROPATHY [None]
  - EXPIRED DRUG ADMINISTERED [None]
